FAERS Safety Report 18908970 (Version 4)
Quarter: 2022Q4

REPORT INFORMATION
  Report Type: Report from Study
  Country: US (occurrence: US)
  Receive Date: 20210218
  Receipt Date: 20221107
  Transmission Date: 20230113
  Serious: Yes (Hospitalization, Other)
  Sender: FDA-Public Use
  Company Number: US-TAKEDA-US201937014

PATIENT
  Sex: Female

DRUGS (1)
  1. HUMAN IMMUNOGLOBULIN G [Suspect]
     Active Substance: HUMAN IMMUNOGLOBULIN G
     Indication: Immunodeficiency common variable
     Dosage: UNK
     Route: 058

REACTIONS (17)
  - Cardiac arrest [Unknown]
  - Cardiac disorder [Unknown]
  - Fall [Unknown]
  - Meningitis [Unknown]
  - Insomnia [Unknown]
  - Sleep disorder [Unknown]
  - Blood test abnormal [Unknown]
  - Illness [Unknown]
  - Weight decreased [Unknown]
  - Joint swelling [Unknown]
  - Peripheral swelling [Unknown]
  - Gait disturbance [Unknown]
  - Fatigue [Unknown]
  - Mania [Unknown]
  - Multiple allergies [Unknown]
  - Incorrect dose administered [Unknown]
  - Inappropriate schedule of product administration [Unknown]

NARRATIVE: CASE EVENT DATE: 20180101
